FAERS Safety Report 7689903-2 (Version None)
Quarter: 2011Q3

REPORT INFORMATION
  Report Type: 
  Country: None (occurrence: None)
  Receive Date: 20110818
  Receipt Date: 20110809
  Transmission Date: 20111222
  Serious: No
  Sender: FDA-Public Use
  Company Number: US-BIOGENIDEC-2011BI020385

PATIENT
  Sex: Female

DRUGS (1)
  1. TYSABRI [Suspect]
     Indication: MULTIPLE SCLEROSIS
     Route: 042
     Dates: start: 20090616

REACTIONS (7)
  - NASOPHARYNGITIS [None]
  - INCREASED UPPER AIRWAY SECRETION [None]
  - JOINT STIFFNESS [None]
  - UPPER RESPIRATORY TRACT CONGESTION [None]
  - GAIT DISTURBANCE [None]
  - CLUMSINESS [None]
  - COUGH [None]
